FAERS Safety Report 11654599 (Version 1)
Quarter: 2015Q4

REPORT INFORMATION
  Report Type: Spontaneous
  Country: US (occurrence: None)
  Receive Date: 20151022
  Receipt Date: 20151022
  Transmission Date: 20160304
  Serious: Yes (Disabling)
  Sender: FDA-Public Use
  Company Number: None

PATIENT
  Age: 55 Year
  Sex: Female
  Weight: 83.92 kg

DRUGS (5)
  1. THYROID MED [Concomitant]
  2. ANTIDEPRESSANT [Concomitant]
     Active Substance: UNSPECIFIED INGREDIENT
  3. LEVAQUIN [Suspect]
     Active Substance: LEVOFLOXACIN
     Indication: ANIMAL BITE
     Dosage: 1 PILL/DAY
     Route: 048
     Dates: start: 20070907, end: 20070912
  4. CPAP MACHINE [Concomitant]
  5. MULTI VITAMINS [Concomitant]

REACTIONS (6)
  - Arthropathy [None]
  - Tendon rupture [None]
  - Eye disorder [None]
  - Mental disorder [None]
  - Gait disturbance [None]
  - Feeling abnormal [None]

NARRATIVE: CASE EVENT DATE: 20070907
